FAERS Safety Report 9267548 (Version 1)
Quarter: 2013Q2

REPORT INFORMATION
  Report Type: Spontaneous
  Country: GB (occurrence: GB)
  Receive Date: 20130502
  Receipt Date: 20130502
  Transmission Date: 20140414
  Serious: Yes (Death)
  Sender: FDA-Public Use
  Company Number: GB-GLAXOSMITHKLINE-B0886751A

PATIENT
  Sex: Female

DRUGS (10)
  1. LAPATINIB [Suspect]
     Indication: BREAST CANCER METASTATIC
     Route: 065
     Dates: start: 201009
  2. ANASTROZOLE [Concomitant]
  3. GOSERELIN [Concomitant]
  4. HERCEPTIN [Concomitant]
  5. ZOLEDRONIC ACID [Concomitant]
  6. EXEMESTANE [Concomitant]
  7. VINORELBINE [Concomitant]
     Dates: start: 201002
  8. CAPECITABINE [Concomitant]
     Dates: start: 201009
  9. ERIBULIN MESILATE [Concomitant]
     Dates: start: 201110
  10. RADIOTHERAPY [Concomitant]
     Dates: start: 200511

REACTIONS (4)
  - Death [Fatal]
  - Metastases to liver [Unknown]
  - Disease progression [Unknown]
  - Back pain [Unknown]
